FAERS Safety Report 22379567 (Version 1)
Quarter: 2023Q2

REPORT INFORMATION
  Report Type: Spontaneous
  Country: US (occurrence: US)
  Receive Date: 20230529
  Receipt Date: 20230529
  Transmission Date: 20230721
  Serious: No
  Sender: FDA-Public Use
  Company Number: US-SA-2023SA035701

PATIENT
  Sex: Female
  Weight: 75.2 kg

DRUGS (15)
  1. DUPIXENT [Suspect]
     Active Substance: DUPILUMAB
     Indication: Asthma
     Dosage: 200 MG, QOW
     Route: 058
     Dates: start: 20210902
  2. ULTRA CO Q10 [Concomitant]
  3. NITROGLYCERIN [Concomitant]
     Active Substance: NITROGLYCERIN
  4. FUROSEMIDE [Concomitant]
     Active Substance: FUROSEMIDE
  5. OMEPRAZOLE [Concomitant]
     Active Substance: OMEPRAZOLE
  6. ASPIRIN [Concomitant]
     Active Substance: ASPIRIN
  7. ATORVASTATIN CALCIUM [Concomitant]
     Active Substance: ATORVASTATIN CALCIUM
  8. VITAMIN D3 [Concomitant]
     Active Substance: CHOLECALCIFEROL
  9. LOSARTAN POTASSIUM [Concomitant]
     Active Substance: LOSARTAN POTASSIUM
  10. DULERA [Concomitant]
     Active Substance: FORMOTEROL FUMARATE DIHYDRATE\MOMETASONE FUROATE
  11. CLOPIDOGREL [Concomitant]
     Active Substance: CLOPIDOGREL BISULFATE
  12. FISH OIL [Concomitant]
     Active Substance: FISH OIL
  13. METOPROLOL SUCCINATE [Concomitant]
     Active Substance: METOPROLOL SUCCINATE
  14. ISOSORBIDE MONONITRATE [Concomitant]
     Active Substance: ISOSORBIDE MONONITRATE
  15. ZOLPIDEM TARTRATE [Concomitant]
     Active Substance: ZOLPIDEM TARTRATE

REACTIONS (4)
  - Cough [Not Recovered/Not Resolved]
  - Wheezing [Not Recovered/Not Resolved]
  - Dyspnoea [Unknown]
  - Gait inability [Unknown]
